FAERS Safety Report 6711924-4 (Version None)
Quarter: 2010Q2

REPORT INFORMATION
  Report Type: 
  Country: None (occurrence: None)
  Receive Date: 20100505
  Receipt Date: 20090722
  Transmission Date: 20101027
  Serious: No
  Sender: FDA-Public Use
  Company Number: US-TYCO HEALTHCARE/MALLINCKRODT-T200901412

PATIENT
  Sex: Male
  Weight: 99.773 kg

DRUGS (7)
  1. METHADONE HCL [Suspect]
     Indication: PAIN
     Dosage: 20 MG (2 TABLETS), QID
     Route: 048
     Dates: start: 20070101, end: 20070101
  2. METHADONE HCL [Suspect]
     Dosage: 20 MG (2 TABLETS), QID
     Route: 048
     Dates: start: 20070101
  3. OXYCONTIN [Concomitant]
     Indication: PAIN
     Dosage: 80 MG, 2-3X/DAY
     Route: 048
     Dates: start: 20040101, end: 20070101
  4. PERCOCET [Concomitant]
     Indication: PAIN
     Dosage: 20 MG (2 TABLETS), QID
     Route: 048
     Dates: start: 20070101, end: 20070101
  5. VICOPROFEN [Concomitant]
     Indication: PAIN
     Dosage: UNK
     Route: 048
     Dates: start: 20070101, end: 20070101
  6. SEROQUEL [Concomitant]
     Dosage: 50 MG, BID (1 TAB IN AM, 1 TAB @ HS)
     Route: 048
  7. LOPID [Concomitant]
     Indication: BLOOD TRIGLYCERIDES INCREASED
     Dosage: 600 MG, BID (1 TAB IN AM, 1 TAB IN PM)
     Route: 048

REACTIONS (2)
  - DYSPNOEA [None]
  - HYPERHIDROSIS [None]
